FAERS Safety Report 5420989-1 (Version None)
Quarter: 2007Q3

REPORT INFORMATION
  Report Type: 
  Country: None (occurrence: None)
  Receive Date: 20070817
  Receipt Date: 20070803
  Transmission Date: 20080115
  Serious: Yes (Hospitalization)
  Sender: FDA-Public Use
  Company Number: 2007S1005184

PATIENT
  Age: 17 Year
  Sex: Female
  Weight: 79.8331 kg

DRUGS (2)
  1. ENALAPRIL MALEATE [Suspect]
     Indication: MICROALBUMINURIA
     Dosage: 20 MG; DAILY; ORAL
     Route: 048
     Dates: start: 20060824, end: 20061228
  2. INSULIN [Concomitant]

REACTIONS (1)
  - PANCREATITIS [None]
